FAERS Safety Report 20559148 (Version 2)
Quarter: 2022Q2

REPORT INFORMATION
  Report Type: Report from Study
  Country: US (occurrence: US)
  Receive Date: 20220307
  Receipt Date: 20220408
  Transmission Date: 20220721
  Serious: Yes (Other)
  Sender: FDA-Public Use
  Company Number: US-TAKEDA-2022TUS007235

PATIENT
  Age: 47 Year
  Sex: Male

DRUGS (1)
  1. VEDOLIZUMAB [Suspect]
     Active Substance: VEDOLIZUMAB
     Indication: Colitis ulcerative
     Dosage: 300 MILLIGRAM
     Route: 042
     Dates: start: 20211115

REACTIONS (8)
  - Haematochezia [Unknown]
  - COVID-19 [Recovering/Resolving]
  - Abdominal pain upper [Unknown]
  - Muscular weakness [Recovering/Resolving]
  - Oropharyngeal pain [Unknown]
  - Fatigue [Unknown]
  - Gastrointestinal sounds abnormal [Unknown]
  - Alopecia [Unknown]

NARRATIVE: CASE EVENT DATE: 20211115
